FAERS Safety Report 7246626-1 (Version None)
Quarter: 2011Q1

REPORT INFORMATION
  Report Type: 
  Country: None (occurrence: None)
  Receive Date: 20110127
  Receipt Date: 20110113
  Transmission Date: 20110831
  Serious: No
  Sender: FDA-Public Use
  Company Number: US-BIOGENIDEC-2011BI002528

PATIENT
  Sex: Female

DRUGS (3)
  1. TYSABRI [Suspect]
     Indication: MULTIPLE SCLEROSIS
     Route: 042
     Dates: start: 20090416, end: 20101124
  2. COPAXONE [Concomitant]
     Dates: start: 20090101
  3. TYSABRI [Suspect]
     Route: 042
     Dates: start: 20070713, end: 20081009

REACTIONS (2)
  - LOSS OF CONTROL OF LEGS [None]
  - PRURITUS [None]
